FAERS Safety Report 8965270 (Version 1)
Quarter: 2012Q4

REPORT INFORMATION
  Report Type: 
  Country: AU (occurrence: AU)
  Receive Date: 20121213
  Receipt Date: 20121213
  Transmission Date: 20130627
  Serious: Yes (Hospitalization)
  Sender: FDA-Public Use
  Company Number: AU-ROCHE-1167918

PATIENT
  Sex: Female
  Weight: 89 kg

DRUGS (6)
  1. CAPECITABINE [Suspect]
     Indication: PRODUCT USED FOR UNKNOWN INDICATION
     Route: 065
     Dates: start: 20120418, end: 20120502
  2. PHENYTOIN SODIUM [Interacting]
     Indication: PRODUCT USED FOR UNKNOWN INDICATION
     Route: 065
  3. CARBAMAZEPINE [Concomitant]
  4. CHOLECALCIFEROL [Concomitant]
  5. CITALOPRAM HYDROBROMIDE [Concomitant]
  6. LEVETIRACETAM [Concomitant]

REACTIONS (5)
  - Syncope [Recovered/Resolved]
  - Toxicity to various agents [Recovered/Resolved]
  - Balance disorder [Recovered/Resolved]
  - Nausea [Recovered/Resolved]
  - Vertigo [Recovered/Resolved]
